FAERS Safety Report 10152977 (Version 2)
Quarter: 2014Q2

REPORT INFORMATION
  Report Type: Spontaneous
  Country: FI (occurrence: FI)
  Receive Date: 20140505
  Receipt Date: 20140505
  Transmission Date: 20141212
  Serious: Yes (Other)
  Sender: FDA-Public Use
  Company Number: FI-ACTAVIS-2014-08582

PATIENT
  Age: 76 Year
  Sex: Female

DRUGS (3)
  1. DOCETAXEL ACTAVIS [Suspect]
     Indication: OVARIAN CANCER
     Dosage: 130 ML, DAILY
     Route: 042
     Dates: start: 20140319, end: 20140319
  2. CARBOPLATIN HOSPIRA [Concomitant]
     Indication: OVARIAN CANCER
     Dosage: 380 ML, UNK
     Route: 042
     Dates: start: 20140319, end: 20140319
  3. AVASTIN                            /01555201/ [Concomitant]
     Indication: OVARIAN CANCER
     Dosage: 520 ML, UNK
     Route: 042
     Dates: start: 20140319, end: 20140319

REACTIONS (5)
  - Infusion site rash [Recovering/Resolving]
  - Infusion site erythema [Recovering/Resolving]
  - Infusion site pruritus [Recovering/Resolving]
  - Infusion site warmth [Recovering/Resolving]
  - Infusion site irritation [Recovering/Resolving]
